FAERS Safety Report 7652229-7 (Version None)
Quarter: 2011Q3

REPORT INFORMATION
  Report Type: 
  Country: None (occurrence: None)
  Receive Date: 20110803
  Receipt Date: 20110726
  Transmission Date: 20111222
  Serious: No
  Sender: FDA-Public Use
  Company Number: US-BAYER-2011-065402

PATIENT
  Sex: Female

DRUGS (2)
  1. BEYAZ [Suspect]
  2. NICOTINE [Concomitant]
     Indication: TOBACCO USER
     Route: 062

REACTIONS (1)
  - HORMONE LEVEL ABNORMAL [None]
